FAERS Safety Report 8233211-8 (Version None)
Quarter: 2012Q1

REPORT INFORMATION
  Report Type: 
  Country: None (occurrence: None)
  Receive Date: 20120326
  Receipt Date: 20120321
  Transmission Date: 20120608
  Serious: No
  Sender: FDA-Public Use
  Company Number: US-PFIZER INC-2012074842

PATIENT
  Sex: Female

DRUGS (2)
  1. ARICEPT [Concomitant]
     Dosage: UNK
  2. TOVIAZ [Suspect]
     Dosage: 4 MG, UNK

REACTIONS (1)
  - PALPITATIONS [None]
